FAERS Safety Report 10567176 (Version 1)
Quarter: 2014Q4

REPORT INFORMATION
  Report Type: Spontaneous
  Country: GB (occurrence: GB)
  Receive Date: 20141105
  Receipt Date: 20141105
  Transmission Date: 20150529
  Serious: Yes (Hospitalization)
  Sender: FDA-Public Use
  Company Number: GB-009507513-1411GBR000102

PATIENT
  Age: 22 Year
  Sex: Female
  Weight: 70 kg

DRUGS (1)
  1. NEXPLANON [Suspect]
     Active Substance: ETONOGESTREL
     Indication: CONTRACEPTION
     Route: 051
     Dates: end: 20141021

REACTIONS (3)
  - Device dislocation [Not Recovered/Not Resolved]
  - Groin abscess [Not Recovered/Not Resolved]
  - Condition aggravated [Not Recovered/Not Resolved]
